FAERS Safety Report 6554059-6 (Version None)
Quarter: 2010Q1

REPORT INFORMATION
  Report Type: 
  Country: None (occurrence: None)
  Receive Date: 20100122
  Receipt Date: 20100115
  Transmission Date: 20100710
  Serious: Yes (Hospitalization, Other)
  Sender: FDA-Public Use
  Company Number: 1000009675

PATIENT
  Age: 37 Year
  Sex: Male

DRUGS (1)
  1. LEXAPRO [Suspect]
     Indication: EMOTIONAL DISTRESS
     Dosage: 10 MG
     Dates: start: 20080805

REACTIONS (4)
  - EMOTIONAL DISORDER [None]
  - HOMICIDE [None]
  - PHYSICAL ASSAULT [None]
  - SUICIDE ATTEMPT [None]
